FAERS Safety Report 8986532 (Version 1)
Quarter: 2012Q4

REPORT INFORMATION
  Report Type: 
  Country: US (occurrence: US)
  Receive Date: 20121227
  Receipt Date: 20121227
  Transmission Date: 20130627
  Serious: Yes (Other)
  Sender: FDA-Public Use
  Company Number: US-ASTRAZENECA-2012SE94583

PATIENT
  Age: 52 Year
  Sex: Male

DRUGS (18)
  1. NEXIUM [Suspect]
     Route: 048
     Dates: start: 20090813
  2. HYDROCOD BIT/APAP [Concomitant]
     Indication: PAIN
     Dosage: 10/500 EVERY 6 HOURS AS NEEDED
     Route: 048
     Dates: start: 20090724
  3. TRAZADONE [Concomitant]
     Route: 048
     Dates: start: 20091009
  4. PAROXETINE [Concomitant]
     Route: 048
     Dates: start: 20091009
  5. METFORMIN HCL [Concomitant]
     Route: 048
     Dates: start: 20091009
  6. LIPITOR [Concomitant]
     Route: 048
     Dates: start: 20091009
  7. MICARDIS [Concomitant]
     Route: 048
     Dates: start: 20091009
  8. FUROSEMIDE [Concomitant]
     Route: 048
     Dates: start: 20091019
  9. METHOCARBAMOL [Concomitant]
     Route: 048
     Dates: start: 20091019
  10. NABUMETONE [Concomitant]
     Route: 048
     Dates: start: 20091009
  11. TRAMADOL [Concomitant]
     Indication: PAIN
     Dates: start: 20100811
  12. ASPIRIN [Concomitant]
     Dates: start: 20100811
  13. FLEXERIL [Concomitant]
     Dates: start: 20100811
  14. AVALIDE [Concomitant]
     Dosage: 12.5 MG TO 150 MG 1 TAB ONCE A DAY
     Dates: start: 20100811
  15. MICARDIS HCT [Concomitant]
     Dosage: 12.5 MG TO 40 MG 1 TAB ONCE A DAY
     Dates: start: 20100811
  16. MOBIC [Concomitant]
     Dates: start: 20100811
  17. ULTRAM [Concomitant]
     Dates: start: 20100811
  18. TYLENOL [Concomitant]
     Indication: ARTHRITIS
     Dates: start: 20100811

REACTIONS (2)
  - Lumbar radiculopathy [Unknown]
  - Osteoporosis [Unknown]
